FAERS Safety Report 22336942 (Version 2)
Quarter: 2024Q3

REPORT INFORMATION
  Report Type: Spontaneous
  Country: BG (occurrence: BG)
  Receive Date: 20230518
  Receipt Date: 20240715
  Transmission Date: 20241016
  Serious: Yes (Death, Other)
  Sender: ASTELLAS
  Company Number: BG-ASTELLAS-2023US014843

PATIENT
  Age: 76 Year
  Sex: Male

DRUGS (1)
  1. XTANDI [Suspect]
     Active Substance: ENZALUTAMIDE
     Indication: Prostate cancer
     Dosage: 160 MG, UNKNOWN FREQ. (4 TH LINE)
     Route: 065

REACTIONS (3)
  - Death [Fatal]
  - Malignant neoplasm progression [Unknown]
  - Platelet count decreased [Unknown]

NARRATIVE: CASE EVENT DATE: 20230224
